FAERS Safety Report 16841668 (Version 4)
Quarter: 2025Q4

REPORT INFORMATION
  Report Type: Spontaneous
  Country: EU (occurrence: EU)
  Receive Date: 20190923
  Receipt Date: 20251006
  Transmission Date: 20260118
  Serious: Yes (Death, Life-Threatening, Hospitalization, Other)
  Sender: BAUSCH AND LOMB
  Company Number: None

PATIENT
  Age: 65 Year
  Sex: Female

DRUGS (13)
  1. BUPROPION HYDROCHLORIDE [Suspect]
     Active Substance: BUPROPION HYDROCHLORIDE
     Indication: Mental disorder
     Route: 065
  2. DIAZEPAM [Suspect]
     Active Substance: DIAZEPAM
     Indication: Product used for unknown indication
     Route: 065
  3. AMITRIPTYLINE [Suspect]
     Active Substance: AMITRIPTYLINE
     Indication: Mental disorder
     Route: 065
  4. ARIPIPRAZOLE [Suspect]
     Active Substance: ARIPIPRAZOLE
     Indication: Mental disorder
     Route: 065
  5. NEFOPAM [Suspect]
     Active Substance: NEFOPAM
     Indication: Analgesic therapy
     Route: 048
  6. NEFOPAM [Suspect]
     Active Substance: NEFOPAM
     Route: 048
  7. NEFOPAM [Suspect]
     Active Substance: NEFOPAM
     Route: 048
  8. EPINEPHRINE [Suspect]
     Active Substance: EPINEPHRINE
     Indication: Product used for unknown indication
     Dosage: (UP TO 6 MICRO-GRAM/KG/MIN)
     Route: 042
  9. MIRTAZAPINE [Suspect]
     Active Substance: MIRTAZAPINE
     Indication: Mental disorder
     Route: 048
  10. NOREPINEPHRINE [Suspect]
     Active Substance: NOREPINEPHRINE
     Indication: Supraventricular tachycardia
     Dosage: (UP TO 6 MICRO-GRAM/KG/MIN)
     Route: 042
  11. TRAMADOL [Suspect]
     Active Substance: TRAMADOL
     Indication: Mental disorder
     Route: 065
  12. AMISULPRIDE [Suspect]
     Active Substance: AMISULPRIDE
     Indication: Mental disorder
     Route: 065
  13. EPINEPHRINE [Concomitant]
     Active Substance: EPINEPHRINE
     Indication: Product used for unknown indication

REACTIONS (14)
  - Serotonin syndrome [Fatal]
  - Shock [Fatal]
  - Mydriasis [Fatal]
  - Dyspnoea [Fatal]
  - Hyperhidrosis [Fatal]
  - Autonomic nervous system imbalance [Fatal]
  - Myoclonus [Fatal]
  - Respiratory failure [Unknown]
  - Haemodynamic instability [Unknown]
  - Chronic obstructive pulmonary disease [Not Recovered/Not Resolved]
  - Hyperlactacidaemia [Unknown]
  - Supraventricular tachycardia [Unknown]
  - Loss of consciousness [Unknown]
  - Drug ineffective [Unknown]
